FAERS Safety Report 24838211 (Version 1)
Quarter: 2025Q1

REPORT INFORMATION
  Report Type: Spontaneous
  Country: US (occurrence: None)
  Receive Date: 20250113
  Receipt Date: 20250113
  Transmission Date: 20250409
  Serious: Yes (Other)
  Sender: FDA-CTU
  Company Number: None

PATIENT
  Age: 67 Year
  Sex: Male
  Weight: 108 kg

DRUGS (16)
  1. ELIQUIS [Suspect]
     Active Substance: APIXABAN
     Indication: Thrombosis
     Dosage: 2 TABLETS TWICE  A DAY ORAL ?
     Route: 048
  2. ELIQUIS [Suspect]
     Active Substance: APIXABAN
     Indication: Pulmonary embolism
  3. APIXABAN [Concomitant]
     Active Substance: APIXABAN
  4. ATENOLOL [Concomitant]
     Active Substance: ATENOLOL
  5. LATANOPROST [Concomitant]
     Active Substance: LATANOPROST
  6. OXYCODONE [Concomitant]
     Active Substance: OXYCODONE
  7. OXYGEN [Concomitant]
     Active Substance: OXYGEN
  8. ARGININE [Concomitant]
     Active Substance: ARGININE
  9. ASCORBIC ACID [Concomitant]
     Active Substance: ASCORBIC ACID
  10. CHOLECALCIFEROL [Concomitant]
     Active Substance: CHOLECALCIFEROL
  11. CYANOCOBALAMIN [Concomitant]
     Active Substance: CYANOCOBALAMIN
  12. DOCUSATE SODIUM [Concomitant]
     Active Substance: DOCUSATE SODIUM
  13. FOLIC ACID [Concomitant]
     Active Substance: FOLIC ACID
  14. MAGNESIUM [Concomitant]
     Active Substance: MAGNESIUM
  15. MELATONIN [Concomitant]
     Active Substance: MELATONIN
  16. SYSTANE (HYPROMELLOSE 2910 (4000 MPA.S)) [Concomitant]
     Active Substance: HYPROMELLOSE 2910 (4000 MPA.S)

REACTIONS (1)
  - Headache [None]

NARRATIVE: CASE EVENT DATE: 20250109
